FAERS Safety Report 20354449 (Version 1)
Quarter: 2022Q1

REPORT INFORMATION
  Report Type: Spontaneous
  Country: US (occurrence: US)
  Receive Date: 20220120
  Receipt Date: 20220120
  Transmission Date: 20220423
  Serious: No
  Sender: FDA-Public Use
  Company Number: US-drreddys-SPO/USA/22/0145676

PATIENT
  Sex: Male

DRUGS (1)
  1. HABITROL [Suspect]
     Active Substance: NICOTINE
     Indication: Tobacco user
     Route: 062

REACTIONS (4)
  - Product dose omission issue [Unknown]
  - Wrong technique in product usage process [Unknown]
  - Treatment noncompliance [Unknown]
  - Product adhesion issue [Unknown]
